FAERS Safety Report 12163949 (Version 1)
Quarter: 2016Q1

REPORT INFORMATION
  Report Type: Spontaneous
  Country: US (occurrence: US)
  Receive Date: 20160309
  Receipt Date: 20160309
  Transmission Date: 20160526
  Serious: No
  Sender: FDA-Public Use
  Company Number: US-ROCHE-1629259

PATIENT
  Sex: Female

DRUGS (6)
  1. ATIVAN [Concomitant]
     Active Substance: LORAZEPAM
     Indication: ANXIETY
  2. PROZAC [Concomitant]
     Active Substance: FLUOXETINE HYDROCHLORIDE
  3. ATIVAN [Concomitant]
     Active Substance: LORAZEPAM
     Indication: PRURITUS
  4. NEURONTIN [Concomitant]
     Active Substance: GABAPENTIN
  5. BENADRYL + DYCLONE MOUTHRINSE [Concomitant]
     Indication: RASH PRURITIC
  6. XOLAIR [Suspect]
     Active Substance: OMALIZUMAB
     Indication: DERMATITIS ATOPIC
     Dosage: GETS 2 VIALS ONCE A MONTH
     Route: 065
     Dates: start: 201504

REACTIONS (2)
  - Off label use [Unknown]
  - Rash pruritic [Recovering/Resolving]
